FAERS Safety Report 15946405 (Version 1)
Quarter: 2019Q1

REPORT INFORMATION
  Report Type: Spontaneous
  Country: US (occurrence: US)
  Receive Date: 20190119
  Receipt Date: 20190119
  Transmission Date: 20190417
  Serious: Yes (Hospitalization)
  Sender: FDA-Public Use
  Company Number: None

PATIENT
  Age: 60 Year
  Sex: Male
  Weight: 84.6 kg

DRUGS (1)
  1. XELODA [Suspect]
     Active Substance: CAPECITABINE
     Dates: end: 20181220

REACTIONS (5)
  - Subcutaneous emphysema [None]
  - Fall [None]
  - Pneumothorax [None]
  - Rib fracture [None]
  - Haematoma [None]

NARRATIVE: CASE EVENT DATE: 20181223
